FAERS Safety Report 21251350 (Version 2)
Quarter: 2022Q4

REPORT INFORMATION
  Report Type: Spontaneous
  Country: TW (occurrence: TW)
  Receive Date: 20220825
  Receipt Date: 20221224
  Transmission Date: 20230113
  Serious: Yes (Life-Threatening, Hospitalization, Other)
  Sender: FDA-Public Use
  Company Number: None

PATIENT
  Age: 42 Year
  Sex: Male

DRUGS (4)
  1. PREDNISOLONE [Suspect]
     Active Substance: PREDNISOLONE
     Indication: Eye infection toxoplasmal
     Dosage: 15 MILLIGRAM, PER DAY
     Route: 065
  2. DEXAMETHASONE [Suspect]
     Active Substance: DEXAMETHASONE
     Indication: Eye infection toxoplasmal
     Dosage: 5 MILLIGRAM, TOTAL
  3. COTRIMOXAZOLE [Suspect]
     Active Substance: SULFAMETHOXAZOLE\TRIMETHOPRIM
     Indication: Eye infection toxoplasmal
     Dosage: UNK, EVERY 12 HRS
     Route: 065
  4. COTRIMOXAZOLE [Suspect]
     Active Substance: SULFAMETHOXAZOLE\TRIMETHOPRIM
     Dosage: UNK, EVERY 8 HOURS
     Route: 065

REACTIONS (6)
  - Rhegmatogenous retinal detachment [Recovered/Resolved]
  - Necrotising retinitis [Recovered/Resolved]
  - Vitritis [Recovered/Resolved]
  - Eye infection toxoplasmal [Recovered/Resolved]
  - Condition aggravated [Recovered/Resolved]
  - Drug ineffective [Unknown]
